FAERS Safety Report 6233092-8 (Version None)
Quarter: 2009Q2

REPORT INFORMATION
  Report Type: 
  Country: None (occurrence: None)
  Receive Date: 20090616
  Receipt Date: 20090616
  Transmission Date: 20091009
  Serious: Yes (Hospitalization)
  Sender: FDA-Public Use
  Company Number: None

PATIENT
  Age: 74 Year
  Sex: Male
  Weight: 60 kg

DRUGS (1)
  1. INSULIN [Suspect]
     Indication: DIABETES MELLITUS
     Dosage: 4 UNITS TID SQ
     Route: 058
     Dates: start: 20081205

REACTIONS (3)
  - HYPOGLYCAEMIA [None]
  - OVERDOSE [None]
  - UNRESPONSIVE TO STIMULI [None]
